FAERS Safety Report 4738764-X (Version None)
Quarter: 2005Q3

REPORT INFORMATION
  Report Type: 
  Country: None (occurrence: None)
  Receive Date: 20050804
  Receipt Date: 20050707
  Transmission Date: 20060218
  Serious: Yes (Other)
  Sender: FDA-Public Use
  Company Number: DE-2005-000791

PATIENT
  Age: 41 Year
  Sex: Female

DRUGS (1)
  1. YASMIN [Suspect]
     Indication: ORAL CONTRACEPTION
     Dosage: TAB (S), ORAL
     Route: 048
     Dates: start: 20030101, end: 20050101

REACTIONS (5)
  - COLD SWEAT [None]
  - CONVULSION [None]
  - DYSPNOEA [None]
  - PALPITATIONS [None]
  - SYNCOPE [None]
